FAERS Safety Report 20181401 (Version 2)
Quarter: 2022Q1

REPORT INFORMATION
  Report Type: Spontaneous
  Country: IN (occurrence: IN)
  Receive Date: 20211214
  Receipt Date: 20220315
  Transmission Date: 20220423
  Serious: Yes (Death)
  Sender: FDA-Public Use
  Company Number: IN-PFIZER INC-2021072978

PATIENT
  Age: 61 Year
  Sex: Female

DRUGS (1)
  1. PALBOCICLIB [Suspect]
     Active Substance: PALBOCICLIB
     Indication: Breast cancer metastatic
     Dosage: 125 MG, CYCLIC, FOR 21 DAYS AND ^+ DAYS OFF^
     Route: 048
     Dates: start: 202004, end: 202108

REACTIONS (6)
  - Neoplasm progression [Fatal]
  - Decreased appetite [Unknown]
  - Fatigue [Unknown]
  - Nausea [Unknown]
  - Oropharyngeal discomfort [Unknown]
  - Peripheral swelling [Unknown]
